FAERS Safety Report 16393510 (Version 1)
Quarter: 2019Q2

REPORT INFORMATION
  Report Type: Spontaneous
  Country: IT (occurrence: IT)
  Receive Date: 20190605
  Receipt Date: 20190605
  Transmission Date: 20190711
  Serious: Yes (Other)
  Sender: FDA-Public Use
  Company Number: PHHY2019IT122865

PATIENT
  Age: 14 Year
  Sex: Female

DRUGS (2)
  1. INDOMETHACIN. [Concomitant]
     Active Substance: INDOMETHACIN
     Indication: STILL^S DISEASE
     Dosage: 3 MG/KG, QD
     Route: 065
  2. PREDNISONE. [Suspect]
     Active Substance: PREDNISONE
     Indication: STILL^S DISEASE
     Dosage: 1 MG/KG, QD
     Route: 042
     Dates: start: 20121013

REACTIONS (10)
  - Hirsutism [Unknown]
  - Depressed mood [Unknown]
  - Aspartate aminotransferase increased [Unknown]
  - Suicidal ideation [Unknown]
  - Gamma-glutamyltransferase increased [Unknown]
  - Alanine aminotransferase increased [Unknown]
  - Skin striae [Unknown]
  - Hyperglycaemia [Unknown]
  - Cushingoid [Unknown]
  - Hypertension [Unknown]
